FAERS Safety Report 9442974 (Version 2)
Quarter: 2013Q3

REPORT INFORMATION
  Report Type: Report from Study
  Country: DE (occurrence: DE)
  Receive Date: 20130806
  Receipt Date: 20130828
  Transmission Date: 20140515
  Serious: Yes (Death, Hospitalization)
  Sender: FDA-Public Use
  Company Number: DE-ABBOTT-13P-062-1128206-00

PATIENT
  Age: 69 Year
  Sex: Male

DRUGS (11)
  1. TRENANTONE (LEUPRORELIN ACETATE) [Suspect]
     Indication: PROSTATE CANCER
     Route: 058
     Dates: start: 20111104, end: 20130226
  2. ANTI-ANDROGENS [Concomitant]
     Indication: PROSTATE CANCER
     Dates: start: 2012, end: 2013
  3. ACETYLSALICYLIC ACID [Concomitant]
     Indication: PRODUCT USED FOR UNKNOWN INDICATION
  4. LIPID MODIFYING AGENTS [Concomitant]
     Indication: PRODUCT USED FOR UNKNOWN INDICATION
  5. PROTON PUMP INHIBITORS [Concomitant]
     Indication: PRODUCT USED FOR UNKNOWN INDICATION
  6. LEVOTHYROXINE SODIUM [Concomitant]
     Indication: THYROIDECTOMY
  7. BENZODIAZEPINE RELATED DRUGS [Concomitant]
     Indication: TEMPORAL ARTERITIS
  8. TRICYCLIC ANTIDEPRESSANTS [Concomitant]
     Indication: TEMPORAL ARTERITIS
  9. OPIAT [Concomitant]
     Indication: BACK PAIN
  10. OPIAT [Concomitant]
     Indication: TEMPORAL ARTERITIS
  11. CYPROTERONE ACETATE [Concomitant]
     Indication: HOT FLUSH

REACTIONS (5)
  - Haemorrhagic stroke [Fatal]
  - Weight decreased [Unknown]
  - Parkinson^s disease [Unknown]
  - Temporal arteritis [Unknown]
  - Back pain [Unknown]
